FAERS Safety Report 22586801 (Version 3)
Quarter: 2025Q1

REPORT INFORMATION
  Report Type: Report from Study
  Country: US (occurrence: US)
  Receive Date: 20230611
  Receipt Date: 20250109
  Transmission Date: 20250409
  Serious: Yes (Hospitalization)
  Sender: ABBVIE
  Company Number: US-ABBVIE-5280545

PATIENT
  Age: 81 Year
  Sex: Male

DRUGS (2)
  1. VENCLEXTA [Suspect]
     Active Substance: VENETOCLAX
     Indication: Lymphocytic leukaemia
     Route: 048
     Dates: start: 202201
  2. VENCLEXTA [Suspect]
     Active Substance: VENETOCLAX
     Indication: Lymphocytic leukaemia
     Dosage: LAST ADMIN DATE: JAN 2022
     Route: 048
     Dates: start: 20220121

REACTIONS (12)
  - Cellulitis [Unknown]
  - Blister infected [Unknown]
  - Blister rupture [Unknown]
  - Skin disorder [Unknown]
  - Immunodeficiency [Unknown]
  - Blister [Unknown]
  - Blood pressure fluctuation [Unknown]
  - Gastrointestinal sounds abnormal [Unknown]
  - COVID-19 [Unknown]
  - Lower respiratory tract infection [Unknown]
  - Pharyngitis [Unknown]
  - Unevaluable event [Unknown]

NARRATIVE: CASE EVENT DATE: 20230501
